FAERS Safety Report 21228589 (Version 3)
Quarter: 2023Q4

REPORT INFORMATION
  Report Type: Report from Study
  Country: JP (occurrence: JP)
  Receive Date: 20220818
  Receipt Date: 20231002
  Transmission Date: 20240109
  Serious: Yes (Hospitalization)
  Sender: FDA-Public Use
  Company Number: JP-JNJFOC-20220733578

PATIENT
  Age: 74 Year
  Sex: Male
  Weight: 62.1 kg

DRUGS (10)
  1. AMIVANTAMAB [Suspect]
     Active Substance: AMIVANTAMAB
     Indication: Non-small cell lung cancer metastatic
     Dosage: 350 MG
     Route: 042
     Dates: start: 20220407, end: 20220630
  2. LEVETIRACETAM [Concomitant]
     Active Substance: LEVETIRACETAM
     Indication: Seizure prophylaxis
     Route: 048
     Dates: start: 20220207
  3. HYDROCORTISONE BUTYRATE [Concomitant]
     Active Substance: HYDROCORTISONE BUTYRATE
     Indication: Dermatitis acneiform
     Dosage: DOSE 1, UNITS NOT PROVIDED
     Route: 061
     Dates: start: 20220428
  4. HEPARINOID [Concomitant]
     Indication: Dry skin
     Dosage: DOSE 1, UNITS NOT PROVIDED
     Route: 061
     Dates: start: 20220506
  5. MAGNESIUM OXIDE [Concomitant]
     Active Substance: MAGNESIUM OXIDE
     Indication: Prophylaxis
     Route: 048
     Dates: start: 20220602
  6. CLOBETASOL PROPIONATE [Concomitant]
     Active Substance: CLOBETASOL PROPIONATE
     Indication: Paronychia
     Dosage: DOSE 1, UNITS NOT REPORTED
     Route: 061
     Dates: start: 20220621, end: 20220708
  7. HYDROCORTISONE [Concomitant]
     Active Substance: HYDROCORTISONE
     Indication: Haemorrhoids
     Dosage: DOSE 1, UNITS NOT PROVIDED
     Route: 061
     Dates: start: 20220630
  8. EKSALB [Concomitant]
     Indication: Paronychia
     Dosage: DOSE 1, UNITS NOT REPORTED
     Route: 061
     Dates: start: 20220708, end: 20220721
  9. ACETAMINOPHEN [Concomitant]
     Active Substance: ACETAMINOPHEN
     Indication: Paronychia
     Route: 048
     Dates: start: 20220708, end: 20220708
  10. DOXYCYCLINE HYDROCHLORIDE [Concomitant]
     Active Substance: DOXYCYCLINE HYDROCHLORIDE
     Indication: Dermatitis acneiform
     Route: 048
     Dates: start: 20220709, end: 20220715

REACTIONS (1)
  - Pulmonary embolism [Recovered/Resolved]

NARRATIVE: CASE EVENT DATE: 20220711
